FAERS Safety Report 5387322-5 (Version None)
Quarter: 2007Q3

REPORT INFORMATION
  Report Type: 
  Country: None (occurrence: None)
  Receive Date: 20070716
  Receipt Date: 20070706
  Transmission Date: 20080115
  Serious: Yes (Hospitalization)
  Sender: FDA-Public Use
  Company Number: PHBS2007CH11646

PATIENT
  Sex: Male

DRUGS (4)
  1. VOLTAREN [Suspect]
     Indication: ARTHRALGIA
     Dates: start: 20061101, end: 20061201
  2. BLOPRESS PLUS [Concomitant]
     Dosage: 1 DF/DAY
     Route: 048
  3. ZOCOR [Concomitant]
     Dosage: 20 MG/DAY
     Route: 048
  4. IMOVANE [Concomitant]
     Dosage: 7.5 MG/DAY
     Route: 048

REACTIONS (13)
  - DIVERTICULITIS [None]
  - GASTRITIS ATROPHIC [None]
  - HAEMOGLOBIN DECREASED [None]
  - INFLAMMATION [None]
  - IRON DEFICIENCY ANAEMIA [None]
  - METAPLASIA [None]
  - MICROCYTOSIS [None]
  - MUCOSAL HYPERAEMIA [None]
  - PALLOR [None]
  - POLYP [None]
  - RED BLOOD CELL HYPOCHROMIC MORPHOLOGY PRESENT [None]
  - SERUM FERRITIN DECREASED [None]
  - SUPRAVENTRICULAR EXTRASYSTOLES [None]
